FAERS Safety Report 5629068-1 (Version None)
Quarter: 2008Q1

REPORT INFORMATION
  Report Type: 
  Country: None (occurrence: None)
  Receive Date: 20080216
  Receipt Date: 20071218
  Transmission Date: 20080703
  Serious: Yes (Other)
  Sender: FDA-Public Use
  Company Number: US-PURDUE-USA_2007_0031644

PATIENT
  Sex: Female

DRUGS (3)
  1. OXYCONTIN [Suspect]
     Indication: VULVECTOMY
     Dosage: 30 MG, Q12H
     Route: 048
     Dates: start: 20010314, end: 20020101
  2. ROXICODONE [Concomitant]
     Indication: DRUG USE FOR UNKNOWN INDICATION
     Dosage: 5 MG, Q4H PRN
     Route: 048
  3. DAPSONE [Concomitant]
     Indication: DRUG USE FOR UNKNOWN INDICATION
     Dosage: 100 MG, DAILY
     Route: 048

REACTIONS (28)
  - ALANINE AMINOTRANSFERASE INCREASED [None]
  - ANOREXIA [None]
  - ANXIETY [None]
  - ASPARTATE AMINOTRANSFERASE INCREASED [None]
  - BLOOD ALKALINE PHOSPHATASE INCREASED [None]
  - BLOOD AMYLASE INCREASED [None]
  - BLOOD LACTATE DEHYDROGENASE INCREASED [None]
  - DEPRESSED LEVEL OF CONSCIOUSNESS [None]
  - DEPRESSION [None]
  - DRUG DEPENDENCE [None]
  - FATIGUE [None]
  - HEPATIC ISCHAEMIA [None]
  - HYPERPYREXIA [None]
  - HYPOVOLAEMIA [None]
  - HYPOXIA [None]
  - INSOMNIA [None]
  - LIPASE INCREASED [None]
  - METABOLIC ACIDOSIS [None]
  - NAUSEA [None]
  - OLIGURIA [None]
  - PANCREATITIS ACUTE [None]
  - PANCYTOPENIA [None]
  - RENAL FAILURE [None]
  - RESPIRATORY FAILURE [None]
  - SEPTIC SHOCK [None]
  - TREMOR [None]
  - VOMITING [None]
  - WEIGHT DECREASED [None]
